FAERS Safety Report 16504431 (Version 3)
Quarter: 2019Q3

REPORT INFORMATION
  Report Type: Spontaneous
  Country: US (occurrence: US)
  Receive Date: 20190701
  Receipt Date: 20190724
  Transmission Date: 20191004
  Serious: No
  Sender: FDA-Public Use
  Company Number: US-PFIZER INC-2019279906

PATIENT
  Age: 24 Year
  Sex: Male
  Weight: 102 kg

DRUGS (7)
  1. LYRICA [Suspect]
     Active Substance: PREGABALIN
     Indication: ARTHRALGIA
  2. LYRICA [Suspect]
     Active Substance: PREGABALIN
     Indication: JUVENILE IDIOPATHIC ARTHRITIS
     Dosage: 525 MG, DAILY (150MG ONE CAPSULE TWICE A DAY, AND 225MG CAPSULES BY MOUTH ONCE NIGHTLY)
     Route: 048
  3. LYRICA [Suspect]
     Active Substance: PREGABALIN
     Indication: JUVENILE IDIOPATHIC ARTHRITIS
  4. LYRICA [Suspect]
     Active Substance: PREGABALIN
     Indication: FIBROMYALGIA
  5. LYRICA [Suspect]
     Active Substance: PREGABALIN
     Indication: PSORIATIC ARTHROPATHY
     Dosage: 325 MG, DAILY (225MG FOR BEDTIME AND 150MG DURING THE DAY)
     Route: 048
  6. LYRICA [Suspect]
     Active Substance: PREGABALIN
     Indication: ARTHROPATHY
  7. LYRICA [Suspect]
     Active Substance: PREGABALIN
     Indication: DIABETIC NEUROPATHY

REACTIONS (7)
  - Off label use [Unknown]
  - Body height decreased [Unknown]
  - Therapeutic product effect incomplete [Unknown]
  - Joint swelling [Unknown]
  - Somnolence [Unknown]
  - Product use issue [Unknown]
  - Weight decreased [Unknown]
